FAERS Safety Report 9490078 (Version 2)
Quarter: 2014Q1

REPORT INFORMATION
  Report Type: Spontaneous
  Country: NL (occurrence: NL)
  Receive Date: 20130829
  Receipt Date: 20140110
  Transmission Date: 20141002
  Serious: Yes (Life-Threatening, Hospitalization)
  Sender: FDA-Public Use
  Company Number: NL-009507513-1308USA011143

PATIENT
  Age: 30 Year
  Sex: Female

DRUGS (3)
  1. CELESTONE [Suspect]
     Indication: MATERNAL THERAPY TO ENHANCE FOETAL LUNG MATURITY
     Dosage: 12 MG, BID
     Route: 030
     Dates: start: 2009
  2. CELESTONE [Suspect]
     Indication: PREMATURE LABOUR
  3. NIFEDIPINE [Concomitant]
     Indication: MATERNAL THERAPY TO ENHANCE FOETAL LUNG MATURITY
     Dosage: UNK
     Route: 048

REACTIONS (3)
  - Psychotic disorder [Recovered/Resolved]
  - Delusion [Recovered/Resolved]
  - Exposure during pregnancy [Recovered/Resolved]
